FAERS Safety Report 7545092-6 (Version None)
Quarter: 2011Q2

REPORT INFORMATION
  Report Type: 
  Country: None (occurrence: None)
  Receive Date: 20110610
  Receipt Date: 20110610
  Transmission Date: 20111010
  Serious: Yes (Disabling)
  Sender: FDA-Public Use
  Company Number: None

PATIENT

DRUGS (1)
  1. PROLIA [Suspect]
     Indication: OSTEOPOROSIS
     Dosage: INJECTION EVERY 6 MONTHS
     Dates: start: 20110316

REACTIONS (2)
  - MYALGIA [None]
  - BONE PAIN [None]
